FAERS Safety Report 20537332 (Version 7)
Quarter: 2022Q3

REPORT INFORMATION
  Report Type: Spontaneous
  Country: US (occurrence: US)
  Receive Date: 20220302
  Receipt Date: 20220701
  Transmission Date: 20221027
  Serious: Yes (Other)
  Sender: FDA-Public Use
  Company Number: US-PFIZER INC-202200317695

PATIENT
  Age: 63 Year
  Sex: Female

DRUGS (3)
  1. IBRANCE [Suspect]
     Active Substance: PALBOCICLIB
     Dosage: UNK
     Dates: start: 20220119
  2. IBRANCE [Suspect]
     Active Substance: PALBOCICLIB
     Dosage: UNK
     Dates: start: 20220124
  3. IBRANCE [Suspect]
     Active Substance: PALBOCICLIB
     Dosage: 125 MG
     Dates: start: 20220208

REACTIONS (9)
  - Ankle fracture [Not Recovered/Not Resolved]
  - White blood cell count decreased [Unknown]
  - Fall [Unknown]
  - Rash [Not Recovered/Not Resolved]
  - Irritability [Unknown]
  - Blister [Unknown]
  - Epistaxis [Recovered/Resolved]
  - Rash vesicular [Unknown]
  - Alopecia [Unknown]

NARRATIVE: CASE EVENT DATE: 20220101
